FAERS Safety Report 6397084-0 (Version None)
Quarter: 2009Q4

REPORT INFORMATION
  Report Type: 
  Country: None (occurrence: None)
  Receive Date: 20091012
  Receipt Date: 20091001
  Transmission Date: 20100525
  Serious: Yes (Hospitalization)
  Sender: FDA-Public Use
  Company Number: US-CELGENEUS-163-21880-09100164

PATIENT
  Sex: Female
  Weight: 77.634 kg

DRUGS (2)
  1. REVLIMID [Suspect]
     Indication: MULTIPLE MYELOMA
     Route: 048
     Dates: start: 20090303, end: 20090717
  2. REVLIMID [Suspect]
     Route: 048
     Dates: start: 20091001

REACTIONS (3)
  - COLLAPSE OF LUNG [None]
  - DIARRHOEA [None]
  - PNEUMONIA [None]
